FAERS Safety Report 8069252-3 (Version None)
Quarter: 2012Q1

REPORT INFORMATION
  Report Type: 
  Country: None (occurrence: None)
  Receive Date: 20120125
  Receipt Date: 20120115
  Transmission Date: 20120608
  Serious: Yes (Hospitalization)
  Sender: FDA-Public Use
  Company Number: DE-UCBSA-049672

PATIENT
  Age: 16 Year
  Sex: Male
  Weight: 60 kg

DRUGS (2)
  1. KEPPRA [Suspect]
     Dosage: 2 TABLETS, COMPLETE DAILY DOSE WAS TAKEN AT ONCE BY MISTAKE
     Route: 048
  2. LAMOTRIGINE [Suspect]
     Dosage: 2 TABLETS, COMPLETE DAILY DOSE WAS TAKEN AT ONCE BY MISTAKE
     Route: 048

REACTIONS (2)
  - SOMNOLENCE [None]
  - INAPPROPRIATE SCHEDULE OF DRUG ADMINISTRATION [None]
